FAERS Safety Report 13652745 (Version 1)
Quarter: 2017Q2

REPORT INFORMATION
  Report Type: Spontaneous
  Country: US (occurrence: US)
  Receive Date: 20170614
  Receipt Date: 20170614
  Transmission Date: 20170830
  Serious: No
  Sender: FDA-Public Use
  Company Number: US-ROCHE-1008578

PATIENT
  Sex: Female

DRUGS (1)
  1. XELODA [Suspect]
     Active Substance: CAPECITABINE
     Indication: APPENDIX CANCER
     Dosage: TWO 500 MG TABLETS BID AND ONE 150 MG TABLET BID, 14 DAYS ON AND 7 DAYS OFF
     Route: 048
     Dates: start: 20110829

REACTIONS (5)
  - Face oedema [Recovered/Resolved]
  - Oropharyngeal spasm [Recovered/Resolved]
  - Decreased appetite [Recovered/Resolved]
  - Pyrexia [Recovered/Resolved]
  - Nausea [Recovered/Resolved]
